FAERS Safety Report 14823631 (Version 2)
Quarter: 2018Q3

REPORT INFORMATION
  Report Type: Report from Study
  Country: DE (occurrence: DE)
  Receive Date: 20180428
  Receipt Date: 20180726
  Transmission Date: 20181010
  Serious: Yes (Hospitalization, Other)
  Sender: FDA-Public Use
  Company Number: DE-ROCHE-1808372

PATIENT
  Age: 66 Year
  Sex: Female
  Weight: 72 kg

DRUGS (11)
  1. PACLITAXEL. [Concomitant]
     Active Substance: PACLITAXEL
     Indication: BREAST CANCER
     Route: 065
     Dates: start: 20130411
  2. CEFUROXIM [Concomitant]
     Active Substance: CEFUROXIME
     Indication: OPHTHALMIC HERPES ZOSTER
     Route: 065
     Dates: start: 20130209, end: 20130218
  3. AMLODIPIN [Concomitant]
     Active Substance: AMLODIPINE BESYLATE
     Route: 065
     Dates: start: 20130514
  4. HYDROCHLOROTHIAZID [Concomitant]
     Active Substance: HYDROCHLOROTHIAZIDE
     Route: 065
     Dates: start: 20130514
  5. BEVACIZUMAB. [Suspect]
     Active Substance: BEVACIZUMAB
     Indication: BREAST CANCER
     Route: 065
     Dates: start: 20121004, end: 20130502
  6. ACICLOVIR [Concomitant]
     Active Substance: ACYCLOVIR
     Indication: OPHTHALMIC HERPES ZOSTER
     Route: 065
     Dates: start: 20130209
  7. BEVACIZUMAB. [Suspect]
     Active Substance: BEVACIZUMAB
     Dosage: 24/JAN/2013: LAST DOSE PRIOR TO EVENT (HAND FOOT SYNDROME AND XERODERMIA)
     Route: 065
     Dates: start: 20121206, end: 20130502
  8. LYRICA [Concomitant]
     Active Substance: PREGABALIN
     Indication: OPHTHALMIC HERPES ZOSTER
     Route: 065
     Dates: start: 20130209, end: 20130501
  9. RAMIPRIL. [Concomitant]
     Active Substance: RAMIPRIL
     Route: 065
     Dates: start: 20130502
  10. XELODA [Suspect]
     Active Substance: CAPECITABINE
     Indication: BREAST CANCER
     Dosage: 24/JAN/2013: LAST DOSE PRIOR TO EVENT (HAND FOOT SYNDROME AND XERODERMIA)
     Route: 065
     Dates: start: 20121004, end: 20130502
  11. BISOPROLOL [Concomitant]
     Active Substance: BISOPROLOL
     Route: 065
     Dates: start: 20130411

REACTIONS (12)
  - Hypertension [Not Recovered/Not Resolved]
  - Polyneuropathy [Not Recovered/Not Resolved]
  - Cystitis noninfective [Recovered/Resolved]
  - Headache [Recovered/Resolved]
  - Diplopia [Recovered/Resolved]
  - Diarrhoea [Recovered/Resolved]
  - Vomiting [Recovered/Resolved]
  - Xeroderma [Recovered/Resolved]
  - Palmar-plantar erythrodysaesthesia syndrome [Recovered/Resolved]
  - Gingival bleeding [Recovered/Resolved]
  - Nausea [Recovered/Resolved]
  - Onychoclasis [Not Recovered/Not Resolved]

NARRATIVE: CASE EVENT DATE: 20121025
